FAERS Safety Report 23815643 (Version 3)
Quarter: 2024Q2

REPORT INFORMATION
  Report Type: Spontaneous
  Country: US (occurrence: US)
  Receive Date: 20240503
  Receipt Date: 20240521
  Transmission Date: 20240715
  Serious: No
  Sender: FDA-Public Use
  Company Number: US-PFIZER INC-202400098994

PATIENT
  Age: 12 Year
  Sex: Female

DRUGS (3)
  1. EUCRISA [Suspect]
     Active Substance: CRISABOROLE
     Indication: Eczema
     Dosage: UNK
  2. EUCRISA [Suspect]
     Active Substance: CRISABOROLE
     Indication: Erythema
  3. EUCRISA [Suspect]
     Active Substance: CRISABOROLE
     Indication: Dermatitis

REACTIONS (2)
  - Drug ineffective [Unknown]
  - Burning sensation [Unknown]
